FAERS Safety Report 14554154 (Version 1)
Quarter: 2018Q1

REPORT INFORMATION
  Report Type: Spontaneous
  Country: US (occurrence: US)
  Receive Date: 20180220
  Receipt Date: 20180220
  Transmission Date: 20180509
  Serious: Yes (Life-Threatening, Other)
  Sender: FDA-Public Use
  Company Number: US-EPIC PHARMA LLC-2018EPC00081

PATIENT
  Age: 57 Year
  Sex: Male

DRUGS (2)
  1. NICARDIPINE HCL [Suspect]
     Active Substance: NICARDIPINE HYDROCHLORIDE
     Indication: BLOOD PRESSURE MANAGEMENT
     Route: 042
  2. ESMOLOL [Concomitant]
     Active Substance: ESMOLOL HYDROCHLORIDE
     Indication: BLOOD PRESSURE MANAGEMENT
     Route: 042

REACTIONS (4)
  - Acute kidney injury [Unknown]
  - Ileus paralytic [Recovered/Resolved]
  - Respiratory failure [Unknown]
  - Gastrointestinal oedema [Recovered/Resolved]
